FAERS Safety Report 21582614 (Version 2)
Quarter: 2022Q4

REPORT INFORMATION
  Report Type: Spontaneous
  Country: DK (occurrence: DK)
  Receive Date: 20221111
  Receipt Date: 20221208
  Transmission Date: 20230113
  Serious: Yes (Hospitalization, Other)
  Sender: FDA-Public Use
  Company Number: None

PATIENT
  Age: 71 Year
  Sex: Male

DRUGS (28)
  1. PREDNISOLONE [Suspect]
     Active Substance: PREDNISOLONE
     Indication: Prostate cancer
     Dosage: UNK
     Route: 065
  2. PREDNISOLONE [Suspect]
     Active Substance: PREDNISOLONE
     Indication: Metastases to bone
  3. XGEVA [Suspect]
     Active Substance: DENOSUMAB
     Indication: Prostate cancer
     Dosage: UNK
     Route: 065
     Dates: start: 2015
  4. XGEVA [Suspect]
     Active Substance: DENOSUMAB
     Indication: Metastases to bone
     Dosage: UNK, RE INITATED
     Route: 065
  5. XGEVA [Suspect]
     Active Substance: DENOSUMAB
     Dosage: 120 MILLIGRAM, ONCE A MONTH, FOR 11 MONTHS
     Route: 065
  6. ENZALUTAMIDE [Suspect]
     Active Substance: ENZALUTAMIDE
     Indication: Prostate cancer
     Dosage: UNK
     Route: 065
     Dates: start: 2015, end: 2016
  7. ENZALUTAMIDE [Suspect]
     Active Substance: ENZALUTAMIDE
     Indication: Metastases to bone
  8. ABIRATERONE [Suspect]
     Active Substance: ABIRATERONE
     Indication: Prostate cancer
     Dosage: UNK
     Route: 065
  9. ABIRATERONE [Suspect]
     Active Substance: ABIRATERONE
     Indication: Metastases to bone
  10. CABAZITAXEL [Suspect]
     Active Substance: CABAZITAXEL
     Indication: Prostate cancer
     Dosage: UNK
     Route: 042
  11. CABAZITAXEL [Suspect]
     Active Substance: CABAZITAXEL
     Indication: Metastases to bone
  12. ASPIRIN [Concomitant]
     Active Substance: ASPIRIN
     Indication: Hypertension
     Dosage: UNK
     Route: 065
  13. ATORVASTATIN [Concomitant]
     Active Substance: ATORVASTATIN
     Indication: Hypertension
     Dosage: UNK
     Route: 065
  14. FUROSEMIDE [Concomitant]
     Active Substance: FUROSEMIDE
     Indication: Hypertension
     Dosage: UNK
     Route: 065
  15. POTASSIUM CHLORIDE [Concomitant]
     Active Substance: POTASSIUM CHLORIDE
     Indication: Hypertension
     Dosage: UNK
     Route: 065
  16. LOSARTAN [Concomitant]
     Active Substance: LOSARTAN
     Indication: Hypertension
     Dosage: UNK
     Route: 065
  17. METOPROLOL [Concomitant]
     Active Substance: METOPROLOL
     Indication: Hypertension
     Dosage: UNK
     Route: 065
  18. METFORMIN [Concomitant]
     Active Substance: METFORMIN HYDROCHLORIDE
     Indication: Type 2 diabetes mellitus
     Dosage: UNK
     Route: 065
  19. AMOXICILLIN\CLAVULANIC ACID [Concomitant]
     Active Substance: AMOXICILLIN\CLAVULANIC ACID
     Indication: Antibiotic prophylaxis
     Dosage: ADMINISTERED 2 DAYS PREOPERATIVELY AND CONTINUED FOR 9 DAYS POSTOPERATIVELY WITH 500 MG AMOXICILLIN
     Route: 065
  20. AMOXICILLIN\CLAVULANIC ACID [Concomitant]
     Active Substance: AMOXICILLIN\CLAVULANIC ACID
     Dosage: ADMINISTRATED AS A ONE-SHOT PROPHYLAXIS WITH 1000 MG AMOXICILLIN AND 250 MG CLAVULANIC ACID TABLETS.
     Route: 065
  21. AMOXICILLIN\CLAVULANIC ACID [Concomitant]
     Active Substance: AMOXICILLIN\CLAVULANIC ACID
     Dosage: UNK
     Route: 065
  22. AMOXICILLIN\CLAVULANIC ACID [Concomitant]
     Active Substance: AMOXICILLIN\CLAVULANIC ACID
     Dosage: UNK
     Route: 065
  23. AMOXICILLIN\CLAVULANIC ACID [Concomitant]
     Active Substance: AMOXICILLIN\CLAVULANIC ACID
     Dosage: ADMINISTERED 2 DAYS PREOPERATIVELY AND CONTINUED FOR 9 DAYS POSTOPERATIVELY WITH 500 MG AMOXICILLIN
     Route: 065
  24. EPINEPHRINE\LIDOCAINE [Concomitant]
     Active Substance: EPINEPHRINE\LIDOCAINE
     Indication: Local anaesthesia
     Dosage: 10 MILLIGRAM PER MILLILITRE, UNKNOWN
     Route: 065
  25. EPINEPHRINE\LIDOCAINE [Concomitant]
     Active Substance: EPINEPHRINE\LIDOCAINE
     Dosage: 5 MCG/ML
     Route: 065
  26. POTASSIUM [Concomitant]
     Active Substance: POTASSIUM
     Indication: Hypertension
     Dosage: UNK
     Route: 065
  27. EDOXABAN [Concomitant]
     Active Substance: EDOXABAN
     Indication: Atrial fibrillation
     Dosage: UNK
     Route: 065
  28. CALCIUM [Concomitant]
     Active Substance: CALCIUM
     Indication: Hypertension
     Dosage: UNK
     Route: 065

REACTIONS (7)
  - Osteonecrosis of jaw [Recovered/Resolved]
  - Tooth fracture [Unknown]
  - Injury associated with device [Unknown]
  - Peri-implantitis [Recovered/Resolved]
  - Abscess [Unknown]
  - Gingivitis [Unknown]
  - Drug ineffective [Unknown]
